FAERS Safety Report 25713092 (Version 1)
Quarter: 2025Q3

REPORT INFORMATION
  Report Type: Report from Study
  Country: US (occurrence: US)
  Receive Date: 20250822
  Receipt Date: 20250822
  Transmission Date: 20251020
  Serious: Yes (Other)
  Sender: ABBVIE
  Company Number: US-ABBVIE-6423867

PATIENT
  Age: 73 Year
  Sex: Male

DRUGS (1)
  1. IMBRUVICA [Suspect]
     Active Substance: IBRUTINIB
     Indication: Chronic lymphocytic leukaemia
     Dosage: OFF MEDICATION FOR 2 WEEKS?LAST ADMIN DATE: 2025
     Route: 048
     Dates: start: 202501

REACTIONS (1)
  - Medical procedure [Unknown]

NARRATIVE: CASE EVENT DATE: 20250101
